FAERS Safety Report 5544302-4 (Version None)
Quarter: 2007Q4

REPORT INFORMATION
  Report Type: 
  Country: None (occurrence: None)
  Receive Date: 20071206
  Receipt Date: 20071130
  Transmission Date: 20080405
  Serious: Yes (Death, Hospitalization)
  Sender: FDA-Public Use
  Company Number: 163-21880-07070005

PATIENT
  Age: 16 Year
  Sex: Female

DRUGS (8)
  1. REVLIMID [Suspect]
     Indication: ENDOCRINE NEOPLASM MALIGNANT
     Dosage: 15 MG, 1 IN 1 D, ORAL; 25 MG, 1 IN 1 D, ORAL
     Route: 048
     Dates: start: 20070606, end: 20070614
  2. REVLIMID [Suspect]
     Indication: ENDOCRINE NEOPLASM MALIGNANT
     Dosage: 15 MG, 1 IN 1 D, ORAL; 25 MG, 1 IN 1 D, ORAL
     Route: 048
     Dates: start: 20070702
  3. ZOFRAN [Concomitant]
  4. NORETHINDRONE (NORETHISTERONE) [Concomitant]
  5. MIRALAX [Concomitant]
  6. EFFEXOR [Concomitant]
  7. BACTRIM [Concomitant]
  8. FLUCONAZOLE [Concomitant]

REACTIONS (10)
  - BONE PAIN [None]
  - COMPUTERISED TOMOGRAM ABNORMAL [None]
  - DISEASE PROGRESSION [None]
  - HEPATIC ENZYME INCREASED [None]
  - METASTASES TO LIVER [None]
  - METASTASES TO LUNG [None]
  - NUCLEAR MAGNETIC RESONANCE IMAGING BRAIN ABNORMAL [None]
  - RESPIRATORY FAILURE [None]
  - VOMITING [None]
  - WEIGHT DECREASED [None]
